FAERS Safety Report 6711050-4 (Version None)
Quarter: 2010Q2

REPORT INFORMATION
  Report Type: 
  Country: None (occurrence: None)
  Receive Date: 20100505
  Receipt Date: 20100426
  Transmission Date: 20101027
  Serious: Yes (Hospitalization)
  Sender: FDA-Public Use
  Company Number: US-JNJFOC-20100407634

PATIENT
  Sex: Male
  Weight: 23.59 kg

DRUGS (6)
  1. RISPERDAL [Suspect]
     Indication: DISTURBANCE IN SOCIAL BEHAVIOUR
     Route: 048
  2. RISPERDAL [Suspect]
     Route: 048
  3. FOCALIN [Concomitant]
     Indication: CHANGE IN SUSTAINED ATTENTION
     Route: 048
  4. CLONIDINE [Concomitant]
     Indication: INSOMNIA
     Route: 048
  5. CLONIDINE [Concomitant]
     Route: 048
  6. RITALIN [Concomitant]
     Indication: ATTENTION DEFICIT/HYPERACTIVITY DISORDER
     Route: 048

REACTIONS (6)
  - ADVERSE EVENT [None]
  - ANAEMIA [None]
  - HYPOPLASTIC ANAEMIA [None]
  - LEUKOPENIA [None]
  - NEUTROPENIA [None]
  - PLATELET COUNT DECREASED [None]
